FAERS Safety Report 15134271 (Version 2)
Quarter: 2018Q3

REPORT INFORMATION
  Report Type: Spontaneous
  Country: JP (occurrence: JP)
  Receive Date: 20180712
  Receipt Date: 20180810
  Transmission Date: 20181010
  Serious: Yes (Other)
  Sender: FDA-Public Use
  Company Number: PHJP2018JP012498

PATIENT
  Sex: Male

DRUGS (2)
  1. ZYKADIA [Suspect]
     Active Substance: CERITINIB
     Indication: LUNG NEOPLASM MALIGNANT
     Dosage: 450 MG, QD
     Route: 048
  2. ZYKADIA [Suspect]
     Active Substance: CERITINIB
     Dosage: 300 MG, UNK
     Route: 048

REACTIONS (3)
  - Peritonitis [Unknown]
  - Pancreatitis [Unknown]
  - Pain [Unknown]
